FAERS Safety Report 15209128 (Version 2)
Quarter: 2018Q3

REPORT INFORMATION
  Report Type: Spontaneous
  Country: JP (occurrence: JP)
  Receive Date: 20180727
  Receipt Date: 20180910
  Transmission Date: 20181010
  Serious: Yes (Other)
  Sender: FDA-Public Use
  Company Number: JP-009507513-1807JPN003050J

PATIENT

DRUGS (1)
  1. KEYTRUDA [Suspect]
     Active Substance: PEMBROLIZUMAB
     Indication: NON-SMALL CELL LUNG CANCER
     Dosage: UNKNOWN
     Route: 041

REACTIONS (8)
  - Hypothyroidism [Unknown]
  - Liver disorder [Unknown]
  - Interstitial lung disease [Unknown]
  - Adrenal insufficiency [Unknown]
  - Pyrexia [Unknown]
  - Rash [Unknown]
  - Hypophysitis [Unknown]
  - Diarrhoea [Unknown]
